FAERS Safety Report 7879882-7 (Version None)
Quarter: 2011Q4

REPORT INFORMATION
  Report Type: 
  Country: None (occurrence: None)
  Receive Date: 20111101
  Receipt Date: 20111020
  Transmission Date: 20120403
  Serious: Yes (Hospitalization)
  Sender: FDA-Public Use
  Company Number: FR-MERCK-1110USA03725

PATIENT
  Age: 69 Year
  Sex: Female

DRUGS (6)
  1. CLONAZEPAM [Concomitant]
     Route: 048
  2. LUMIGAN [Concomitant]
     Route: 065
  3. ASPIRIN [Concomitant]
     Route: 065
  4. TIMOPTIC [Suspect]
     Indication: WRONG DRUG ADMINISTERED
     Route: 048
  5. EFFEXOR [Concomitant]
     Route: 065
  6. FLECAINIDE ACETATE [Concomitant]
     Route: 065

REACTIONS (3)
  - BRADYCARDIA [None]
  - HYPOTENSION [None]
  - WRONG DRUG ADMINISTERED [None]
